FAERS Safety Report 8484016-4 (Version None)
Quarter: 2012Q2

REPORT INFORMATION
  Report Type: 
  Country: None (occurrence: None)
  Receive Date: 20120402
  Receipt Date: 20110217
  Transmission Date: 20120825
  Serious: Yes (Hospitalization)
  Sender: FDA-Public Use
  Company Number: A-US2011-45328

PATIENT
  Age: 53 Year
  Sex: Female

DRUGS (3)
  1. SILDENAFIL CITRATE [Concomitant]
  2. AMBRISENTAN (AMBRISENTAN) [Concomitant]
  3. EPOPROSTENOL SODIUM [Suspect]
     Indication: CARDIAC FIBRILLATION
     Dosage: 27 NG/KG, PER MIN, INTRAVENOUS
     Route: 042
     Dates: start: 20110215

REACTIONS (3)
  - DYSPNOEA [None]
  - PULMONARY ARTERIAL HYPERTENSION [None]
  - DISEASE PROGRESSION [None]
